FAERS Safety Report 14767925 (Version 4)
Quarter: 2022Q4

REPORT INFORMATION
  Report Type: Spontaneous
  Country: US (occurrence: None)
  Receive Date: 20180417
  Receipt Date: 20221128
  Transmission Date: 20230113
  Serious: Yes (Death, Other)
  Sender: FDA-Public Use
  Company Number: 2018SE45642

PATIENT
  Age: 81 Year
  Sex: Male
  Weight: 98.9 kg

DRUGS (87)
  1. NEXIUM [Suspect]
     Active Substance: ESOMEPRAZOLE MAGNESIUM
     Indication: Gastrooesophageal reflux disease
     Route: 048
     Dates: start: 2010, end: 2013
  2. NEXIUM [Suspect]
     Active Substance: ESOMEPRAZOLE MAGNESIUM
     Indication: Gastrooesophageal reflux disease
     Route: 048
  3. NEXIUM 24HR [Suspect]
     Active Substance: ESOMEPRAZOLE MAGNESIUM
     Route: 048
     Dates: start: 2010, end: 2013
  4. OMEPRAZOLE [Suspect]
     Active Substance: OMEPRAZOLE
     Indication: Gastrooesophageal reflux disease
     Dosage: GENERIC
     Route: 048
     Dates: start: 2008, end: 2013
  5. OMEPRAZOLE [Suspect]
     Active Substance: OMEPRAZOLE
     Indication: Peptic ulcer
     Dosage: GENERIC
     Route: 048
     Dates: start: 2008, end: 2013
  6. OMEPRAZOLE [Suspect]
     Active Substance: OMEPRAZOLE
     Indication: Gastrooesophageal reflux disease
     Dosage: GENERIC
     Route: 048
     Dates: start: 20091019
  7. OMEPRAZOLE [Suspect]
     Active Substance: OMEPRAZOLE
     Indication: Peptic ulcer
     Dosage: GENERIC
     Route: 048
     Dates: start: 20091019
  8. OMEPRAZOLE [Suspect]
     Active Substance: OMEPRAZOLE
     Indication: Gastrooesophageal reflux disease
     Dosage: GENERIC
     Route: 048
     Dates: start: 20111218
  9. OMEPRAZOLE [Suspect]
     Active Substance: OMEPRAZOLE
     Indication: Peptic ulcer
     Dosage: GENERIC
     Route: 048
     Dates: start: 20111218
  10. OMEPRAZOLE [Suspect]
     Active Substance: OMEPRAZOLE
     Indication: Gastrooesophageal reflux disease
     Dosage: GENERIC
     Route: 048
     Dates: start: 20110509, end: 20120509
  11. OMEPRAZOLE [Suspect]
     Active Substance: OMEPRAZOLE
     Indication: Peptic ulcer
     Dosage: GENERIC
     Route: 048
     Dates: start: 20110509, end: 20120509
  12. OMEPRAZOLE [Suspect]
     Active Substance: OMEPRAZOLE
     Indication: Gastrooesophageal reflux disease
     Dosage: GENERIC
     Route: 048
     Dates: start: 20100802, end: 20110803
  13. OMEPRAZOLE [Suspect]
     Active Substance: OMEPRAZOLE
     Indication: Peptic ulcer
     Dosage: GENERIC
     Route: 048
     Dates: start: 20100802, end: 20110803
  14. OMEPRAZOLE [Suspect]
     Active Substance: OMEPRAZOLE
     Indication: Gastrooesophageal reflux disease
     Dosage: GENERIC
     Route: 048
     Dates: start: 20100406, end: 20110407
  15. OMEPRAZOLE [Suspect]
     Active Substance: OMEPRAZOLE
     Indication: Peptic ulcer
     Dosage: GENERIC
     Route: 048
     Dates: start: 20100406, end: 20110407
  16. OMEPRAZOLE [Suspect]
     Active Substance: OMEPRAZOLE
     Indication: Gastrooesophageal reflux disease
     Dosage: GENERIC
     Route: 048
     Dates: start: 20100330
  17. OMEPRAZOLE [Suspect]
     Active Substance: OMEPRAZOLE
     Indication: Peptic ulcer
     Dosage: GENERIC
     Route: 048
     Dates: start: 20100330
  18. PREVACID [Suspect]
     Active Substance: LANSOPRAZOLE
     Indication: Gastrooesophageal reflux disease
     Route: 065
     Dates: start: 2010, end: 2013
  19. PREVACID [Suspect]
     Active Substance: LANSOPRAZOLE
     Indication: Gastrooesophageal reflux disease
     Route: 048
  20. PANTOPRAZOLE [Suspect]
     Active Substance: PANTOPRAZOLE
     Indication: Gastrooesophageal reflux disease
     Dosage: GENERIC
     Route: 065
     Dates: start: 2011
  21. RANITIDINE [Concomitant]
     Active Substance: RANITIDINE
     Dosage: GENERIC
     Dates: start: 2011
  22. ACETAMINOPHEN [Concomitant]
     Active Substance: ACETAMINOPHEN
     Indication: Pain
     Dates: start: 2011, end: 2013
  23. ROSUVASTATIN [Concomitant]
     Active Substance: ROSUVASTATIN
     Indication: Cerebrovascular accident
     Dates: start: 2009, end: 2013
  24. CARVEDILOL [Concomitant]
     Active Substance: CARVEDILOL
     Indication: Hypertension
     Dates: start: 2008, end: 2013
  25. WARFARIN [Concomitant]
     Active Substance: WARFARIN
     Indication: Coronary artery disease
     Dates: start: 2011, end: 2013
  26. MINOCYCLINE [Concomitant]
     Active Substance: MINOCYCLINE HYDROCHLORIDE
     Indication: Infection
     Dates: start: 2013
  27. VOLTAREN [Concomitant]
     Active Substance: DICLOFENAC SODIUM
     Indication: Pain
     Dates: start: 2013
  28. ZOVIRAX [Concomitant]
     Active Substance: ACYCLOVIR
     Indication: Herpes virus infection
     Dates: start: 2013
  29. LEVOTHYROXINE [Concomitant]
     Active Substance: LEVOTHYROXINE
     Indication: Hyperthyroidism
     Dates: start: 2009, end: 2013
  30. HUMALOG [Concomitant]
     Active Substance: INSULIN LISPRO
     Indication: Diabetes mellitus
     Dates: start: 2011
  31. GABAPENTIN [Concomitant]
     Active Substance: GABAPENTIN
     Indication: Analgesic therapy
     Dates: start: 2011
  32. SULFAMETHOXAZOLE\TRIMETHOPRIM [Concomitant]
     Active Substance: SULFAMETHOXAZOLE\TRIMETHOPRIM
     Indication: Analgesic therapy
     Dates: start: 2013
  33. CIPROFLOXACIN [Concomitant]
     Active Substance: CIPROFLOXACIN
     Indication: Infection
     Dates: start: 2008
  34. DIOVAN [Concomitant]
     Active Substance: VALSARTAN
     Indication: Hypertension
     Dates: start: 2009, end: 2010
  35. JANUVIA [Concomitant]
     Active Substance: SITAGLIPTIN PHOSPHATE
     Indication: Diabetes mellitus
     Dates: start: 2010, end: 2011
  36. AZITHROMYCIN [Concomitant]
     Active Substance: AZITHROMYCIN
     Indication: Infection
     Dates: start: 2011
  37. ACYCLOVIR [Concomitant]
     Active Substance: ACYCLOVIR
     Indication: Herpes virus infection
     Dates: start: 2011
  38. ATORVASTATIN [Concomitant]
     Active Substance: ATORVASTATIN
     Indication: Blood cholesterol increased
     Dates: start: 2012, end: 2013
  39. FUROSEMIDE [Concomitant]
     Active Substance: FUROSEMIDE
     Indication: Oedema
     Dates: start: 2009, end: 2013
  40. FUROSEMIDE [Concomitant]
     Active Substance: FUROSEMIDE
     Indication: Acquired cystic kidney disease
     Dates: start: 2009, end: 2013
  41. GLIPIZIDE [Concomitant]
     Active Substance: GLIPIZIDE
     Indication: Diabetes mellitus
     Dates: start: 2009, end: 2013
  42. VALSARTAN [Concomitant]
     Active Substance: VALSARTAN
     Indication: Hypertension
     Dates: start: 2009, end: 2013
  43. ASPIRIN [Concomitant]
     Active Substance: ASPIRIN
     Dates: start: 2009, end: 2013
  44. ALENDRONATE SODIUM [Concomitant]
     Active Substance: ALENDRONATE SODIUM
  45. TAMSULOSIN HYDROCHLORIDE [Concomitant]
     Active Substance: TAMSULOSIN HYDROCHLORIDE
  46. TERAZOSIN [Concomitant]
     Active Substance: TERAZOSIN HYDROCHLORIDE
  47. OXYBUTYININ [Concomitant]
  48. XARELTO [Concomitant]
     Active Substance: RIVAROXABAN
  49. CLONAZEPAM [Concomitant]
     Active Substance: CLONAZEPAM
  50. DICYCLOMINE [Concomitant]
     Active Substance: DICYCLOMINE HYDROCHLORIDE
  51. CETIRIZINE [Concomitant]
     Active Substance: CETIRIZINE HYDROCHLORIDE
  52. METHYLPRED PAK [Concomitant]
  53. ACETAMINOPHEN\HYDROCODONE BITARTRATE [Concomitant]
     Active Substance: ACETAMINOPHEN\HYDROCODONE BITARTRATE
  54. CHLORPHENIRAMINE MALEATE [Concomitant]
     Active Substance: CHLORPHENIRAMINE MALEATE
  55. PIOGLITAZONE HYDROCHLORIDE [Concomitant]
     Active Substance: PIOGLITAZONE HYDROCHLORIDE
  56. CLOTRIMAZOLE [Concomitant]
     Active Substance: CLOTRIMAZOLE
  57. ETODOLAC [Concomitant]
     Active Substance: ETODOLAC
  58. POTASSIUM CHLORIDE [Concomitant]
     Active Substance: POTASSIUM CHLORIDE
  59. AMLODIPI NE  BESYLATE [Concomitant]
  60. FERROUS GLUCONATE [Concomitant]
     Active Substance: FERROUS GLUCONATE
  61. HYDROXYZINE PAMOATE [Concomitant]
     Active Substance: HYDROXYZINE PAMOATE
  62. LISINOPRIL [Concomitant]
     Active Substance: LISINOPRIL
  63. FELODIPINE [Concomitant]
     Active Substance: FELODIPINE
  64. ROSIGLITAZONE [Concomitant]
     Active Substance: ROSIGLITAZONE
  65. EZETIMIBE [Concomitant]
     Active Substance: EZETIMIBE
  66. SIMETHICONE (DIMETHICONE) [Concomitant]
     Active Substance: DIMETHICONE
  67. SIMVASTATIN [Concomitant]
     Active Substance: SIMVASTATIN
  68. METOPROLOL SUCCINATE [Concomitant]
     Active Substance: METOPROLOL SUCCINATE
  69. ALFUZOSIN HYDROCHLORIDE [Concomitant]
     Active Substance: ALFUZOSIN HYDROCHLORIDE
  70. RABEPRAZOLE SODIUM [Concomitant]
     Active Substance: RABEPRAZOLE SODIUM
  71. BUDESONIDE [Concomitant]
     Active Substance: BUDESONIDE
  72. CLOPIDOGREL BISULFATE [Concomitant]
     Active Substance: CLOPIDOGREL BISULFATE
  73. LORATADINE [Concomitant]
     Active Substance: LORATADINE
  74. HYDROXYZINE HYDROCHLORIDE [Concomitant]
     Active Substance: HYDROXYZINE HYDROCHLORIDE
  75. MELOXICAM [Concomitant]
     Active Substance: MELOXICAM
  76. FLUOCINONIDE [Concomitant]
     Active Substance: FLUOCINONIDE
  77. ROFECOXIB [Concomitant]
     Active Substance: ROFECOXIB
  78. ATENOLOL [Concomitant]
     Active Substance: ATENOLOL
  79. SPIRONOLACTONE [Concomitant]
     Active Substance: SPIRONOLACTONE
  80. GUAIFENESIN [Concomitant]
     Active Substance: GUAIFENESIN
  81. ALPRAZOLAM [Concomitant]
     Active Substance: ALPRAZOLAM
  82. TRAMADOL [Concomitant]
     Active Substance: TRAMADOL
  83. CEPHALEXIN [Concomitant]
     Active Substance: CEPHALEXIN
  84. QUININE [Concomitant]
     Active Substance: QUININE
  85. ZESTORETIC [Concomitant]
     Active Substance: HYDROCHLOROTHIAZIDE\LISINOPRIL
  86. CIPROFLOXACIN HYDROCHLORIDE [Concomitant]
     Active Substance: CIPROFLOXACIN HYDROCHLORIDE
  87. ROSIGLITAZONE MALEATE [Concomitant]
     Active Substance: ROSIGLITAZONE MALEATE

REACTIONS (7)
  - Acute myocardial infarction [Fatal]
  - Gastrointestinal haemorrhage [Fatal]
  - Diabetes mellitus [Fatal]
  - Neuropathy peripheral [Fatal]
  - Chronic kidney disease [Unknown]
  - Renal failure [Unknown]
  - Acute kidney injury [Unknown]

NARRATIVE: CASE EVENT DATE: 20110101
